FAERS Safety Report 25191494 (Version 1)
Quarter: 2025Q2

REPORT INFORMATION
  Report Type: Spontaneous
  Country: US (occurrence: None)
  Receive Date: 20250412
  Receipt Date: 20250412
  Transmission Date: 20250717
  Serious: Yes (Death, Hospitalization, Other)
  Sender: FDA-CTU
  Company Number: None

PATIENT
  Age: 65 Year
  Sex: Male
  Weight: 97.7 kg

DRUGS (4)
  1. CEFTRIAXONE [Suspect]
     Active Substance: CEFTRIAXONE
     Indication: Cystitis
     Route: 040
     Dates: start: 20250408
  2. SODIUM CHLORIDE [Concomitant]
     Active Substance: SODIUM CHLORIDE
     Dates: start: 20250408
  3. FENTANYL [Concomitant]
     Active Substance: FENTANYL
     Dates: start: 20250408
  4. iohexol 300mg/ml [Concomitant]
     Dates: start: 20250408

REACTIONS (6)
  - Back pain [None]
  - Pain in extremity [None]
  - Haematuria [None]
  - Hypotension [None]
  - Urinary tract infection [None]
  - Pulseless electrical activity [None]

NARRATIVE: CASE EVENT DATE: 20250408
